FAERS Safety Report 7705297-8 (Version None)
Quarter: 2011Q3

REPORT INFORMATION
  Report Type: 
  Country: None (occurrence: None)
  Receive Date: 20110818
  Receipt Date: 20110802
  Transmission Date: 20111222
  Serious: Yes (Life-Threatening, Hospitalization, Other)
  Sender: FDA-Public Use
  Company Number: 2011MA010850

PATIENT
  Age: 38 Year
  Sex: Male

DRUGS (2)
  1. NAPROXEN SODIUM [Suspect]
     Indication: SUICIDE ATTEMPT
     Dosage: 2 BOXES
  2. METFORMIN HYDROCHLORIDE [Suspect]
     Indication: SUICIDE ATTEMPT
     Dosage: 85000 MG; X1; PO
     Route: 048

REACTIONS (11)
  - VOMITING [None]
  - ACIDOSIS [None]
  - BLOOD PRESSURE INCREASED [None]
  - SUICIDE ATTEMPT [None]
  - DEPRESSED LEVEL OF CONSCIOUSNESS [None]
  - BLOOD GLUCOSE DECREASED [None]
  - DYSPNOEA [None]
  - DIZZINESS [None]
  - NAUSEA [None]
  - CONVULSION [None]
  - HAEMODIALYSIS [None]
